FAERS Safety Report 6733931-8 (Version None)
Quarter: 2010Q2

REPORT INFORMATION
  Report Type: 
  Country: None (occurrence: None)
  Receive Date: 20100520
  Receipt Date: 20100511
  Transmission Date: 20101027
  Serious: Yes (Disabling, Other)
  Sender: FDA-Public Use
  Company Number: CA-ROCHE-703079

PATIENT
  Age: 50 Year
  Sex: Female

DRUGS (2)
  1. PEGASYS [Suspect]
     Indication: HEPATITIS C
     Route: 058
  2. RIBAVIRIN [Suspect]
     Indication: HEPATITIS C
     Route: 048

REACTIONS (7)
  - ASCITES [None]
  - DECREASED APPETITE [None]
  - FATIGUE [None]
  - HAEMOLYTIC ANAEMIA [None]
  - INSOMNIA [None]
  - MENORRHAGIA [None]
  - OEDEMA [None]
